FAERS Safety Report 20762557 (Version 2)
Quarter: 2022Q2

REPORT INFORMATION
  Report Type: Spontaneous
  Country: US (occurrence: None)
  Receive Date: 20220428
  Receipt Date: 20220516
  Transmission Date: 20220721
  Serious: No
  Sender: FDA-Public Use
  Company Number: 2022A123585

PATIENT
  Age: 22353 Day
  Sex: Female

DRUGS (2)
  1. EVUSHELD [Suspect]
     Active Substance: CILGAVIMAB\TIXAGEVIMAB
     Indication: Ill-defined disorder
     Dosage: 300.0MG UNKNOWN
     Route: 030
     Dates: start: 20220214
  2. EVUSHELD [Suspect]
     Active Substance: CILGAVIMAB\TIXAGEVIMAB
     Indication: Ill-defined disorder
     Dosage: 300.0MG UNKNOWN
     Route: 030
     Dates: start: 20220316

REACTIONS (8)
  - Myalgia [Unknown]
  - Peripheral coldness [Unknown]
  - Cough [Not Recovered/Not Resolved]
  - Insomnia [Unknown]
  - Injection site pain [Unknown]
  - Pain in extremity [Unknown]
  - Off label use [Unknown]
  - Wrong technique in product usage process [Unknown]

NARRATIVE: CASE EVENT DATE: 20220316
